FAERS Safety Report 12535942 (Version 1)
Quarter: 2016Q3

REPORT INFORMATION
  Report Type: Spontaneous
  Country: US (occurrence: None)
  Receive Date: 20160706
  Receipt Date: 20160706
  Transmission Date: 20161109
  Serious: No
  Sender: FDA-Public Use
  Company Number: None

PATIENT
  Sex: Female

DRUGS (1)
  1. AFINITOR [Suspect]
     Active Substance: EVEROLIMUS
     Indication: NEOPLASM MALIGNANT
     Dosage: 5MG TAKE 1 TABLET DAILY PO
     Route: 048
     Dates: start: 20160428, end: 201605

REACTIONS (2)
  - Drug ineffective [None]
  - Red blood cell count decreased [None]

NARRATIVE: CASE EVENT DATE: 20160518
